FAERS Safety Report 5225357-3 (Version None)
Quarter: 2007Q1

REPORT INFORMATION
  Report Type: 
  Country: None (occurrence: None)
  Receive Date: 20070131
  Receipt Date: 20070124
  Transmission Date: 20070707
  Serious: Yes (Other)
  Sender: FDA-Public Use
  Company Number: IL-ROXANE LABORATORIES, INC-2007-DE-00430GD

PATIENT
  Age: 73 Year
  Sex: Male

DRUGS (3)
  1. MORPHINE [Suspect]
     Indication: MUSCULOSKELETAL PAIN
  2. MORPHINE [Suspect]
     Indication: BACK PAIN
  3. CONTRAST MEDIA [Suspect]

REACTIONS (4)
  - BLINDNESS TRANSIENT [None]
  - HYPERCAPNIA [None]
  - HYPOVENTILATION [None]
  - OXYGEN SATURATION DECREASED [None]
